FAERS Safety Report 16721182 (Version 2)
Quarter: 2019Q3

REPORT INFORMATION
  Report Type: Report from Study
  Country: TR (occurrence: TR)
  Receive Date: 20190820
  Receipt Date: 20190823
  Transmission Date: 20191005
  Serious: Yes (Death, Other)
  Sender: FDA-Public Use
  Company Number: TR-ROCHE-2377091

PATIENT
  Age: 27 Week
  Sex: Male
  Weight: 1.27 kg

DRUGS (1)
  1. ALTEPLASE. [Suspect]
     Active Substance: ALTEPLASE
     Indication: INTRACARDIAC THROMBUS
     Dosage: STARTED WITH LOW DOSE (0.01 MG/KG/H) AND INCREASED GRADUALLY TO 0.06 MG/KG/H
     Route: 042

REACTIONS (2)
  - Sepsis [Fatal]
  - Haemorrhage intracranial [Unknown]
